FAERS Safety Report 22346363 (Version 1)
Quarter: 2023Q2

REPORT INFORMATION
  Report Type: Spontaneous
  Country: US (occurrence: US)
  Receive Date: 20230519
  Receipt Date: 20230519
  Transmission Date: 20230721
  Serious: Yes (Other)
  Sender: FDA-Public Use
  Company Number: US-PFIZER INC-PV202300088409

PATIENT
  Age: 94 Year
  Sex: Female

DRUGS (1)
  1. EXEMESTANE [Suspect]
     Active Substance: EXEMESTANE
     Dosage: 25 MG, DAILY (TAKE AFTER A MEAL)
     Route: 048

REACTIONS (2)
  - Reaction to excipient [Unknown]
  - Haemorrhage [Unknown]
